FAERS Safety Report 20083408 (Version 1)
Quarter: 2021Q4

REPORT INFORMATION
  Report Type: Spontaneous
  Country: GB (occurrence: GB)
  Receive Date: 20211117
  Receipt Date: 20211117
  Transmission Date: 20220303
  Serious: Yes (Other)
  Sender: FDA-Public Use
  Company Number: GB-MHRA-EYC 00265081

PATIENT
  Age: 15 Year
  Sex: Male
  Weight: 53 kg

DRUGS (3)
  1. ARIPIPRAZOLE [Suspect]
     Active Substance: ARIPIPRAZOLE
     Indication: Autism spectrum disorder
     Dosage: 1 DOSAGE FORM, ONCE A DAY (0.5 ML)
     Route: 048
     Dates: start: 2015
  2. CALCIUM [Concomitant]
     Active Substance: CALCIUM
     Indication: Product used for unknown indication
     Dosage: UNK (AS NECESSARY)
     Route: 065
  3. VITAMINS [Concomitant]
     Active Substance: VITAMINS
     Indication: Product used for unknown indication
     Dosage: UNK (AS NECESSARY)
     Route: 065

REACTIONS (1)
  - Disinhibition [Recovered/Resolved with Sequelae]

NARRATIVE: CASE EVENT DATE: 20200101
